FAERS Safety Report 7920646-3 (Version None)
Quarter: 2011Q4

REPORT INFORMATION
  Report Type: 
  Country: None (occurrence: None)
  Receive Date: 20111117
  Receipt Date: 20111104
  Transmission Date: 20120403
  Serious: Yes (Hospitalization)
  Sender: FDA-Public Use
  Company Number: JP-UCBSA-014653

PATIENT
  Age: 70 Year
  Sex: Female

DRUGS (33)
  1. MECOBALAMIN [Concomitant]
     Indication: ARTERIOSCLEROSIS
     Dates: start: 20060614
  2. ATORVASTATIN CALCIUM [Concomitant]
     Dates: start: 20060406
  3. KETOPROFEN [Concomitant]
     Dosage: QS
     Dates: start: 20090325, end: 20091001
  4. QUAZEPAM [Concomitant]
     Dates: start: 20110224
  5. SULPIRIDE [Concomitant]
     Route: 048
     Dates: start: 20100120, end: 20110223
  6. CARBAMAZEPINE [Suspect]
     Indication: DEPRESSIVE SYMPTOM
     Route: 048
     Dates: start: 20110224
  7. LANSOPRAZOLE [Concomitant]
     Dates: start: 20070129
  8. FOLIC ACID [Concomitant]
     Dates: start: 20081224, end: 20100617
  9. KETOPROFEN [Concomitant]
     Dosage: QS
     Dates: start: 20090423, end: 20091001
  10. SULPIRIDE [Concomitant]
     Dates: start: 20110224
  11. CERTOLIZUMAB PEGOL [Suspect]
     Indication: RHEUMATOID ARTHRITIS
     Route: 058
     Dates: start: 20101220, end: 20110622
  12. CERTOLIZUMAB PEGOL [Suspect]
     Dosage: C870-041
     Route: 058
     Dates: start: 20090101, end: 20091015
  13. SEDEKOPAN [Suspect]
     Indication: MOOD ALTERED
     Route: 048
     Dates: start: 20110224
  14. FERROUS SULFATE TAB [Concomitant]
     Dates: start: 20090820
  15. METHOTREXATE [Concomitant]
     Dosage: 8 MG WEEKLY IN THREE DIVIDED DOSES
     Dates: start: 20100705
  16. SULPIRIDE [Concomitant]
     Indication: GASTRITIS PROPHYLAXIS
     Route: 048
     Dates: start: 20061221, end: 20100119
  17. SOFALCONE [Concomitant]
     Dates: start: 20100415
  18. BERAPROST SODIUM [Concomitant]
     Dates: start: 20080213, end: 20100623
  19. ZOLPIDEM TARTRATE [Concomitant]
     Dates: start: 20110224
  20. LITHIUM CARBONATE [Suspect]
     Indication: MOOD ALTERED
     Route: 048
     Dates: start: 20110224
  21. BERAPROST SODIUM [Concomitant]
     Dates: start: 20100705
  22. AN EXTRACT OBTAINED FROM INFLAMMATORY RABBIT SKIN INOCULA [Concomitant]
     Dosage: 3 TABLETS DAILY
     Dates: start: 20080806
  23. MELOXICAM [Concomitant]
     Dates: start: 20080806
  24. FOLIC ACID [Concomitant]
     Dates: start: 20100705
  25. SULPIRIDE [Concomitant]
     Route: 048
     Dates: start: 20100120, end: 20110223
  26. CERTOLIZUMAB PEGOL [Suspect]
     Route: 058
     Dates: start: 20091029, end: 20101125
  27. SENNOSIDE [Concomitant]
     Dates: start: 20100527
  28. IMIDAPRIL HYDROCHLORIDE [Concomitant]
     Dates: start: 20090806
  29. METHOTREXATE [Concomitant]
     Dosage: 8 MG/WEEK (4MG-2MG-2MG)
     Dates: start: 20081222, end: 20100617
  30. SULPIRIDE [Concomitant]
     Indication: ARTERIOSCLEROSIS
     Route: 048
     Dates: start: 20061221, end: 20100119
  31. CERTOLIZUMAB PEGOL [Suspect]
     Dosage: C870-041
     Route: 058
     Dates: start: 20090416, end: 20090101
  32. KETOPROFEN [Concomitant]
     Dosage: QS
     Dates: start: 20080806
  33. SULPIRIDE [Concomitant]
     Dates: start: 20110224

REACTIONS (2)
  - RHEUMATOID ARTHRITIS [None]
  - DEMENTIA [None]
